FAERS Safety Report 18098538 (Version 1)
Quarter: 2020Q3

REPORT INFORMATION
  Report Type: Report from Study
  Country: US (occurrence: US)
  Receive Date: 20200731
  Receipt Date: 20200731
  Transmission Date: 20201103
  Serious: No
  Sender: FDA-Public Use
  Company Number: NVSC2020US212022

PATIENT
  Sex: Female

DRUGS (1)
  1. GILENYA [Suspect]
     Active Substance: FINGOLIMOD HYDROCHLORIDE
     Indication: MULTIPLE SCLEROSIS
     Dosage: 0.5 MG, QD
     Route: 048
     Dates: start: 201812

REACTIONS (7)
  - Sleep disorder [Recovering/Resolving]
  - Depression [Recovering/Resolving]
  - Paraesthesia [Recovering/Resolving]
  - Decreased interest [Recovering/Resolving]
  - Pain [Recovering/Resolving]
  - Depressed mood [Recovering/Resolving]
  - Loss of personal independence in daily activities [Recovering/Resolving]
